FAERS Safety Report 5456509-5 (Version None)
Quarter: 2007Q3

REPORT INFORMATION
  Report Type: 
  Country: None (occurrence: None)
  Receive Date: 20070918
  Receipt Date: 20070430
  Transmission Date: 20080115
  Serious: Yes (Other)
  Sender: FDA-Public Use
  Company Number: US-ASTRAZENECA-2006UW25263

PATIENT
  Age: 583 Month
  Sex: Male
  Weight: 120.5 kg

DRUGS (1)
  1. SEROQUEL [Suspect]
     Indication: BIPOLAR DISORDER
     Route: 048
     Dates: start: 20000101

REACTIONS (2)
  - DIABETIC COMA [None]
  - TYPE 2 DIABETES MELLITUS [None]
